FAERS Safety Report 9760752 (Version 2)
Quarter: 2014Q1

REPORT INFORMATION
  Report Type: Spontaneous
  Country: US (occurrence: US)
  Receive Date: 20131216
  Receipt Date: 20140207
  Transmission Date: 20141002
  Serious: No
  Sender: FDA-Public Use
  Company Number: US-BIOGENIDEC-2013BI102019

PATIENT
  Age: 42 Year
  Sex: Female

DRUGS (15)
  1. TECFIDERA [Suspect]
     Indication: MULTIPLE SCLEROSIS
     Route: 048
     Dates: start: 20131013
  2. TECFIDERA [Suspect]
     Indication: MULTIPLE SCLEROSIS
     Route: 048
     Dates: start: 201310
  3. LYRICA [Concomitant]
  4. ZOLOFT [Concomitant]
  5. VALIUM [Concomitant]
  6. SOMA [Concomitant]
  7. HYDROCODONE [Concomitant]
  8. MILK THISTLE [Concomitant]
  9. DANDELION ROOT [Concomitant]
  10. COQ10 [Concomitant]
  11. FISH OIL [Concomitant]
  12. EVENING PRIMROSE [Concomitant]
  13. L-ACETYLCARNITINE [Concomitant]
  14. AMINO ACID [Concomitant]
  15. L-CARNITINE [Concomitant]

REACTIONS (6)
  - Hyperaesthesia [Unknown]
  - Flushing [Recovered/Resolved]
  - Rash erythematous [Recovered/Resolved]
  - Rash [Unknown]
  - Abdominal pain [Unknown]
  - Nausea [Unknown]
